FAERS Safety Report 8031108 (Version 7)
Quarter: 2012Q4

REPORT INFORMATION
  Report Type: Report from Study
  Country: GB (occurrence: GB)
  Receive Date: 20110711
  Receipt Date: 20121217
  Transmission Date: 20130627
  Serious: Yes (Hospitalization)
  Sender: FDA-Public Use
  Company Number: GB-VERTEX PHARMACEUTICALS INC.-AE-2011-000287

PATIENT
  Age: 44 Year
  Sex: Male
  Weight: 101 kg

DRUGS (7)
  1. VX-950 (TELAPREVIR) [Suspect]
     Indication: HEPATITIS C
     Dosage: 750 mg, tid
     Route: 048
     Dates: start: 20110319, end: 20110609
  2. RIBAVIRIN [Suspect]
     Indication: HEPATITIS C
     Dosage: 600 mg, bid
     Route: 048
     Dates: start: 20110319, end: 20110610
  3. Z-PEGYLATED INTERFERON-2A [Suspect]
     Indication: HEPATITIS C
     Dosage: 180 ?g, qw
     Route: 058
     Dates: start: 20110319, end: 20110610
  4. HYDROCORTISONE [Concomitant]
     Indication: RASH
     Route: 061
     Dates: start: 20110503
  5. CITALOPRAM [Concomitant]
     Indication: MOOD SWINGS
     Dates: start: 201010
  6. CETIRIZINE [Concomitant]
     Indication: PRURITUS
     Dates: start: 20110503
  7. PROMETHAZINE [Concomitant]
     Indication: PRURITUS

REACTIONS (1)
  - Rash [Recovered/Resolved]
